FAERS Safety Report 8613071-3 (Version None)
Quarter: 2012Q3

REPORT INFORMATION
  Report Type: 
  Country: None (occurrence: None)
  Receive Date: 20120822
  Receipt Date: 20120810
  Transmission Date: 20120928
  Serious: Yes (Other)
  Sender: FDA-Public Use
  Company Number: JP-VERTEX PHARMACEUTICAL INC.-2012-019707

PATIENT
  Age: 65 Year
  Sex: Female

DRUGS (8)
  1. REBETOL [Concomitant]
     Indication: HEPATITIS C
     Dosage: 400 MG, QD
     Route: 048
     Dates: start: 20120515
  2. RABEPRAZOLE SODIUM [Concomitant]
     Dosage: 10 MG, UNK
     Route: 048
  3. DOGMATYL [Concomitant]
     Dosage: 50 MG, QD
     Route: 048
     Dates: start: 20120626
  4. ACETAMINOPHEN [Concomitant]
     Dosage: 1.2 G, UNK
     Route: 048
     Dates: start: 20120612, end: 20120806
  5. VX-950 [Suspect]
     Dosage: 1500 MG, QD
     Route: 048
     Dates: start: 20120523, end: 20120807
  6. VX-950 [Suspect]
     Indication: HEPATITIS C
     Dosage: 2250 MG, QD
     Route: 048
     Dates: start: 20120515, end: 20120522
  7. PEGINTRON                          /01543001/ [Concomitant]
     Indication: HEPATITIS C
     Dosage: 1.5 A?G/KG, UNK
     Route: 058
     Dates: start: 20120515
  8. LOXONIN [Concomitant]
     Dosage: 180 MG, QD
     Route: 048
     Dates: start: 20120515, end: 20120604

REACTIONS (1)
  - PANCREATITIS ACUTE [None]
